FAERS Safety Report 4667613-3 (Version None)
Quarter: 2005Q2

REPORT INFORMATION
  Report Type: 
  Country: None (occurrence: None)
  Receive Date: 20050502
  Receipt Date: 20040715
  Transmission Date: 20051028
  Serious: Yes (Hospitalization)
  Sender: FDA-Public Use
  Company Number: PHEH2004US07720

PATIENT
  Sex: Male
  Weight: 78.9 kg

DRUGS (1)
  1. LOTREL [Suspect]
     Indication: HYPERTENSION
     Dosage: 5 AMLODIPINE/ 20 BENAZEPRIL, ORAL
     Route: 048
     Dates: start: 20020101, end: 20040701

REACTIONS (3)
  - ANGIONEUROTIC OEDEMA [None]
  - SWELLING [None]
  - SWELLING FACE [None]
